FAERS Safety Report 8550968-7 (Version None)
Quarter: 2012Q3

REPORT INFORMATION
  Report Type: 
  Country: None (occurrence: None)
  Receive Date: 20120730
  Receipt Date: 20120727
  Transmission Date: 20120928
  Serious: No
  Sender: FDA-Public Use
  Company Number: US-PFIZER INC-2012182906

PATIENT
  Sex: Female
  Weight: 65.76 kg

DRUGS (3)
  1. NICOTROL [Suspect]
     Indication: SMOKING CESSATION THERAPY
     Dosage: UNK, AS NEEDED
     Dates: start: 20070101, end: 20090101
  2. NICOTROL [Suspect]
     Dosage: UNK, AS NEEDED
     Dates: start: 20120601
  3. NICOTROL [Suspect]
     Dosage: UNK
     Dates: start: 20100101, end: 20100101

REACTIONS (2)
  - DRUG INEFFECTIVE [None]
  - PRODUCT QUALITY ISSUE [None]
